FAERS Safety Report 10515017 (Version 2)
Quarter: 2014Q4

REPORT INFORMATION
  Report Type: Spontaneous
  Country: CA (occurrence: CA)
  Receive Date: 20141013
  Receipt Date: 20141218
  Transmission Date: 20150528
  Serious: Yes (Other)
  Sender: FDA-Public Use
  Company Number: CA-JNJFOC-20141001519

PATIENT
  Age: 78 Year
  Sex: Male
  Weight: 74.84 kg

DRUGS (1)
  1. LISTERINE ZERO [Suspect]
     Active Substance: MINT\PROPYLENE GLYCOL\SORBITOL
     Indication: DENTAL DISORDER PROPHYLAXIS
     Dosage: 1/4 OF THE CAP TWICE.
     Route: 048

REACTIONS (1)
  - Suspected transmission of an infectious agent via product [Recovered/Resolved]
